FAERS Safety Report 6462341-6 (Version None)
Quarter: 2009Q4

REPORT INFORMATION
  Report Type: 
  Country: None (occurrence: None)
  Receive Date: 20091130
  Receipt Date: 20091013
  Transmission Date: 20100525
  Serious: No
  Sender: FDA-Public Use
  Company Number: US-BAYER-200938052NA

PATIENT
  Age: 41 Year
  Sex: Male

DRUGS (1)
  1. MAGNEVIST [Suspect]
     Indication: BACK DISORDER
     Dosage: TOTAL DAILY DOSE: 18 ML
     Dates: start: 20091013, end: 20091013

REACTIONS (1)
  - VOMITING [None]
